FAERS Safety Report 14483542 (Version 1)
Quarter: 2018Q1

REPORT INFORMATION
  Report Type: Spontaneous
  Country: CO (occurrence: CO)
  Receive Date: 20180204
  Receipt Date: 20180204
  Transmission Date: 20180509
  Serious: Yes (Other)
  Sender: FDA-Public Use
  Company Number: CO-BAXTER-2018BAX003430

PATIENT
  Age: 27 Year
  Sex: Male
  Weight: 60 kg

DRUGS (10)
  1. CLORURO DE SODIO 0.9% [Suspect]
     Active Substance: SODIUM CHLORIDE
     Indication: PRODUCT USED FOR UNKNOWN INDICATION
     Route: 065
     Dates: start: 20171215, end: 20171217
  2. DEXTROSA AL 5% USP [Suspect]
     Active Substance: DEXTROSE
     Indication: PRODUCT USED FOR UNKNOWN INDICATION
     Route: 065
     Dates: start: 20171220, end: 20171228
  3. METOCLOPRAMIDE. [Suspect]
     Active Substance: METOCLOPRAMIDE
     Indication: PRODUCT USED FOR UNKNOWN INDICATION
     Route: 065
     Dates: start: 20171213, end: 20171227
  4. OMEPRAZOLE. [Suspect]
     Active Substance: OMEPRAZOLE
     Indication: PRODUCT USED FOR UNKNOWN INDICATION
     Route: 065
     Dates: start: 20171220, end: 20171228
  5. CLORURO DE SODIO 0.9% [Suspect]
     Active Substance: SODIUM CHLORIDE
     Route: 065
     Dates: start: 20171219, end: 20171222
  6. TRAMADOL. [Concomitant]
     Active Substance: TRAMADOL
     Indication: PRODUCT USED FOR UNKNOWN INDICATION
     Route: 065
  7. AMPHOTERICIN [Suspect]
     Active Substance: AMPHOTERICIN B
     Indication: PRODUCT USED FOR UNKNOWN INDICATION
     Route: 065
     Dates: start: 20171217, end: 20171227
  8. DEXTROSA AL 5% USP [Suspect]
     Active Substance: DEXTROSE
     Route: 065
     Dates: start: 20171227, end: 20171227
  9. FLUCONAZOL INYECTABLE [Suspect]
     Active Substance: FLUCONAZOLE
     Indication: PRODUCT USED FOR UNKNOWN INDICATION
     Route: 065
     Dates: start: 20171217, end: 20171228
  10. DEXTROSA AL 5% USP [Suspect]
     Active Substance: DEXTROSE
     Route: 065
     Dates: start: 20171225, end: 20171225

REACTIONS (2)
  - Blood culture positive [None]
  - Bacteraemia [Recovered/Resolved]

NARRATIVE: CASE EVENT DATE: 20171220
